FAERS Safety Report 5532161-5 (Version None)
Quarter: 2007Q4

REPORT INFORMATION
  Report Type: 
  Country: None (occurrence: None)
  Receive Date: 20071203
  Receipt Date: 20071122
  Transmission Date: 20080405
  Serious: Yes (Hospitalization, Disabling, Other)
  Sender: FDA-Public Use
  Company Number: CA-JNJFOC-20070501006

PATIENT
  Sex: Male
  Weight: 104.5 kg

DRUGS (10)
  1. INFLIXIMAB [Suspect]
     Indication: RHEUMATOID ARTHRITIS
     Route: 042
  2. METHOTREXATE [Concomitant]
     Indication: RHEUMATOID ARTHRITIS
     Route: 048
  3. LIPITOR [Concomitant]
     Indication: BLOOD CHOLESTEROL
     Route: 048
  4. DIOVAN [Concomitant]
     Dosage: ^80^ DAILY
     Route: 048
  5. FOLIC ACID [Concomitant]
     Indication: PROPHYLAXIS
     Route: 048
  6. PREDNISONE TAB [Concomitant]
     Indication: RHEUMATOID ARTHRITIS
     Route: 048
  7. PANTOPRAZOLE SODIUM [Concomitant]
     Indication: DYSLIPIDAEMIA
     Route: 048
  8. LOPRESSOR [Concomitant]
     Indication: HYPERTENSION
     Route: 048
  9. AAS [Concomitant]
     Indication: ANGINA PECTORIS
  10. DILAUDID [Concomitant]
     Indication: MUSCULOSKELETAL PAIN
     Dosage: AS NEEDED
     Route: 048

REACTIONS (3)
  - FALL [None]
  - MUSCULOSKELETAL PAIN [None]
  - TESTICULAR CYST [None]
